FAERS Safety Report 4333625-2 (Version None)
Quarter: 2004Q2

REPORT INFORMATION
  Report Type: 
  Country: None (occurrence: None)
  Receive Date: 20040405
  Receipt Date: 20040405
  Transmission Date: 20050107
  Serious: Yes (Death)
  Sender: FDA-Public Use
  Company Number: None

PATIENT
  Age: 18 Year
  Sex: Female
  Weight: 55 kg

DRUGS (5)
  1. PREDNISONE [Suspect]
     Indication: ACUTE LYMPHOCYTIC LEUKAEMIA
     Dosage: PER INDUCTION COG #9900
     Dates: start: 20040217, end: 20040305
  2. ELSPAR [Suspect]
     Indication: ACUTE LYMPHOCYTIC LEUKAEMIA
     Dosage: PER INDUCTION COG #9900
  3. VINCRISTINE [Suspect]
     Indication: ACUTE LYMPHOCYTIC LEUKAEMIA
     Dosage: PER INDUCTION COG #9900
  4. DAUNOMYCIN [Suspect]
     Indication: ACUTE LYMPHOCYTIC LEUKAEMIA
     Dosage: PER INDUCTION COG #9900
  5. METHOTREXATE [Suspect]
     Indication: ACUTE LYMPHOCYTIC LEUKAEMIA
     Dosage: PER INDUCTION COG # 9900

REACTIONS (16)
  - BLOOD URINE [None]
  - DISSEMINATED INTRAVASCULAR COAGULATION [None]
  - HAEMODYNAMIC INSTABILITY [None]
  - HAEMORRHAGE [None]
  - HYPOTENSION [None]
  - KLEBSIELLA INFECTION [None]
  - OBSTRUCTIVE AIRWAYS DISORDER [None]
  - ORAL DISCHARGE [None]
  - PANCREATITIS [None]
  - PERIPHERAL EMBOLISM [None]
  - RENAL TUBULAR NECROSIS [None]
  - SHOCK [None]
  - SUPRAVENTRICULAR TACHYCARDIA [None]
  - SWELLING [None]
  - SWELLING FACE [None]
  - URINE OUTPUT DECREASED [None]
